FAERS Safety Report 4464982-4 (Version None)
Quarter: 2004Q4

REPORT INFORMATION
  Report Type: 
  Country: None (occurrence: None)
  Receive Date: 20041004
  Receipt Date: 20040511
  Transmission Date: 20050328
  Serious: No
  Sender: FDA-Public Use
  Company Number: 370271

PATIENT
  Age: 65 Year
  Sex: Female

DRUGS (2)
  1. COREG [Suspect]
     Indication: ILL-DEFINED DISORDER
     Dosage: 12.5MG TWICE PER DAY
     Route: 048
  2. TAPAZOLE [Concomitant]

REACTIONS (1)
  - ALOPECIA [None]
